FAERS Safety Report 5711166-5 (Version None)
Quarter: 2008Q2

REPORT INFORMATION
  Report Type: 
  Country: None (occurrence: None)
  Receive Date: 20080421
  Receipt Date: 20080407
  Transmission Date: 20081010
  Serious: Yes (Hospitalization)
  Sender: FDA-Public Use
  Company Number: JP-GENENTECH-259245

PATIENT
  Sex: Female

DRUGS (4)
  1. BEVACIZUMAB [Suspect]
     Indication: RECTAL CANCER
     Dosage: 5 MG/KG, QD
     Route: 041
     Dates: start: 20070827
  2. OXALIPLATIN [Suspect]
     Indication: RECTAL CANCER
     Dosage: 85 MG/M2, QD
     Route: 041
     Dates: start: 20070827, end: 20071204
  3. FLUOROURACIL [Suspect]
     Indication: RECTAL CANCER
     Dosage: 400 MG/M2, QD
     Route: 042
     Dates: start: 20070827
  4. ISOVORIN [Suspect]
     Indication: RECTAL CANCER
     Dosage: 200 MG/M2, QD
     Route: 041
     Dates: start: 20070827

REACTIONS (2)
  - DUODENAL ULCER [None]
  - EPISTAXIS [None]
